FAERS Safety Report 10673977 (Version 1)
Quarter: 2014Q4

REPORT INFORMATION
  Report Type: Spontaneous
  Country: BE (occurrence: None)
  Receive Date: 20141222
  Receipt Date: 20141222
  Transmission Date: 20150529
  Serious: Yes (Hospitalization)
  Sender: FDA-Public Use
  Company Number: TPU2014-00436

PATIENT
  Age: 71 Year
  Sex: Female
  Weight: 70 kg

DRUGS (4)
  1. EMCONCOR (BISOPROLOL FUMARATE) [Concomitant]
     Active Substance: BISOPROLOL FUMARATE
  2. VERSATIS 5 PER CENT [Suspect]
     Active Substance: LIDOCAINE
     Indication: NEURALGIA
     Route: 061
     Dates: start: 20100319, end: 20100321
  3. LYSOMUCIL (ACETYLCYSTEINE) [Concomitant]
  4. CONTRAMAL (TRAMADOL HYDROCHLORIDE) [Concomitant]

REACTIONS (2)
  - Anger [None]
  - Chest pain [None]

NARRATIVE: CASE EVENT DATE: 20100319
